FAERS Safety Report 11175236 (Version 1)
Quarter: 2015Q2

REPORT INFORMATION
  Report Type: Spontaneous
  Country: US (occurrence: None)
  Receive Date: 20150515
  Receipt Date: 20150515
  Transmission Date: 20150821
  Serious: Yes (Other)
  Sender: FDA-Public Use
  Company Number: 2014000558

PATIENT
  Age: 29 Year
  Sex: Female

DRUGS (7)
  1. MINASTTRIN 24 FE (NORETHINDRONE ACETATE) [Concomitant]
  2. MINASTTRIN 24 FE (ETHINYLESTRADIOL, NORGESTREL) [Concomitant]
  3. SUPREP BOWEL (PREP SOLN (SODIUM SULFATE) [Concomitant]
  4. CIMZIA [Suspect]
     Active Substance: CERTOLIZUMAB PEGOL
     Indication: CROHN^S DISEASE
     Dosage: 400 MG, MONTHLY (QM) (2X200MG), SUBCUTANEOUS
     Route: 058
     Dates: start: 2011
  5. PREDNISONE (PREDNISONE ACETATE) [Concomitant]
  6. CEPHALEXIN PHARMANIAGA (CEFALEXIN) [Concomitant]
  7. DIFLUCAN [Concomitant]
     Active Substance: FLUCONAZOLE

REACTIONS (11)
  - Pregnancy [None]
  - Night sweats [None]
  - Crohn^s disease [None]
  - Weight decreased [None]
  - Pyrexia [None]
  - Haemorrhoids [None]
  - Furuncle [None]
  - Fatigue [None]
  - Paronychia [None]
  - Clostridium difficile colitis [None]
  - Libido decreased [None]

NARRATIVE: CASE EVENT DATE: 201308
